FAERS Safety Report 7897915-9 (Version None)
Quarter: 2011Q4

REPORT INFORMATION
  Report Type: 
  Country: None (occurrence: None)
  Receive Date: 20111107
  Receipt Date: 20110110
  Transmission Date: 20120403
  Serious: No
  Sender: FDA-Public Use
  Company Number: US-BAYER-2011-003219

PATIENT
  Age: 54 Year
  Sex: Female

DRUGS (1)
  1. CLIMARA [Suspect]
     Indication: OESTROGEN DEFICIENCY
     Dosage: UNK
     Route: 062
     Dates: start: 20110106

REACTIONS (3)
  - APPLICATION SITE ERYTHEMA [None]
  - APPLICATION SITE DISCHARGE [None]
  - APPLICATION SITE PRURITUS [None]
